FAERS Safety Report 18176748 (Version 2)
Quarter: 2020Q3

REPORT INFORMATION
  Report Type: Spontaneous
  Country: JP (occurrence: JP)
  Receive Date: 20200820
  Receipt Date: 20200901
  Transmission Date: 20201103
  Serious: Yes (Hospitalization, Other)
  Sender: FDA-Public Use
  Company Number: JP-JNJFOC-20200824632

PATIENT
  Age: 25 Year
  Sex: Female

DRUGS (10)
  1. E KEPPRA [Concomitant]
     Active Substance: LEVETIRACETAM
     Route: 048
     Dates: start: 20170725, end: 20170808
  2. LAMICTAL [Concomitant]
     Active Substance: LAMOTRIGINE
  3. TOPIRAMATE. [Suspect]
     Active Substance: TOPIRAMATE
     Route: 048
     Dates: start: 20190419
  4. SODIUM VALPROATE [Concomitant]
     Active Substance: VALPROATE SODIUM
  5. TOPIRAMATE. [Suspect]
     Active Substance: TOPIRAMATE
     Route: 048
     Dates: start: 20170827
  6. TOPIRAMATE. [Suspect]
     Active Substance: TOPIRAMATE
     Indication: EPILEPSY
     Route: 048
     Dates: start: 20170808
  7. TOPIRAMATE. [Suspect]
     Active Substance: TOPIRAMATE
     Route: 048
     Dates: start: 201803
  8. TOPIRAMATE. [Suspect]
     Active Substance: TOPIRAMATE
     Route: 048
     Dates: start: 20180904
  9. PHENOBAL [Concomitant]
     Active Substance: PHENOBARBITAL
     Route: 048
  10. FYCOMPA [Concomitant]
     Active Substance: PERAMPANEL
     Route: 048
     Dates: start: 20170725

REACTIONS (5)
  - Hallucination, auditory [Not Recovered/Not Resolved]
  - Persecutory delusion [Not Recovered/Not Resolved]
  - Hallucination [Not Recovered/Not Resolved]
  - Hallucination, visual [Not Recovered/Not Resolved]
  - Paranoia [Not Recovered/Not Resolved]

NARRATIVE: CASE EVENT DATE: 2017
